FAERS Safety Report 9257679 (Version 1)
Quarter: 2013Q1

REPORT INFORMATION
  Report Type: Spontaneous
  Country: US (occurrence: None)
  Receive Date: 20121212
  Receipt Date: 20121212
  Transmission Date: 20140127
  Serious: No
  Sender: FDA-Public Use
  Company Number: 1208USA001807

PATIENT
  Age: 57 Year
  Sex: Male

DRUGS (3)
  1. PEGINTRON [Suspect]
     Indication: HEPATITIS C
     Route: 058
     Dates: start: 20070502, end: 20080401
  2. REBETOL [Suspect]
     Indication: HEPATITIS C
     Route: 048
     Dates: start: 20070502, end: 20080401
  3. VICTRELIS [Suspect]
     Indication: HEPATITIS C
     Route: 048
     Dates: start: 20120923

REACTIONS (15)
  - Cold sweat [None]
  - Influenza [None]
  - Burning sensation [None]
  - Chills [None]
  - Drug ineffective [None]
  - Platelet count decreased [None]
  - White blood cell count decreased [None]
  - Fatigue [None]
  - Malaise [None]
  - Diarrhoea [None]
  - Headache [None]
  - Gait disturbance [None]
  - Pyrexia [None]
  - Dyspnoea [None]
  - Abdominal discomfort [None]
